FAERS Safety Report 9379368 (Version 1)
Quarter: 2013Q3

REPORT INFORMATION
  Report Type: Spontaneous
  Country: US (occurrence: US)
  Receive Date: 20130702
  Receipt Date: 20130702
  Transmission Date: 20140515
  Serious: Yes (Other)
  Sender: FDA-Public Use
  Company Number: US-SANOFI-AVENTIS-2013SA066009

PATIENT
  Age: 75 Year
  Sex: Male

DRUGS (2)
  1. LANTUS [Suspect]
     Indication: TYPE 2 DIABETES MELLITUS
     Dosage: DOSE:40 UNIT(S)
     Route: 051
  2. NOVOLOG [Concomitant]

REACTIONS (7)
  - Pain in jaw [Unknown]
  - Coronary artery occlusion [Unknown]
  - Hypoacusis [Recovering/Resolving]
  - Eustachian tube obstruction [Recovering/Resolving]
  - Sinus disorder [Unknown]
  - Blood glucose increased [Unknown]
  - Drug dose omission [Unknown]
